FAERS Safety Report 7519795-3 (Version None)
Quarter: 2011Q2

REPORT INFORMATION
  Report Type: 
  Country: None (occurrence: None)
  Receive Date: 20110524
  Receipt Date: 20110502
  Transmission Date: 20111010
  Serious: Yes (Other)
  Sender: FDA-Public Use
  Company Number: 2011P1006262

PATIENT
  Age: 15 Year
  Sex: Male

DRUGS (1)
  1. ALBENDAZOLE (NO PREF. NAME) [Suspect]
     Indication: ECHINOCOCCIASIS

REACTIONS (3)
  - HAEMOPTYSIS [None]
  - LUNG LOBECTOMY [None]
  - CYST RUPTURE [None]
